FAERS Safety Report 19582526 (Version 1)
Quarter: 2021Q3

REPORT INFORMATION
  Report Type: Spontaneous
  Country: US (occurrence: US)
  Receive Date: 20210720
  Receipt Date: 20210720
  Transmission Date: 20211014
  Serious: Yes (Disabling, Other)
  Sender: FDA-Public Use
  Company Number: None

PATIENT
  Age: 38 Year
  Sex: Female
  Weight: 63 kg

DRUGS (1)
  1. DEPO?PROVERA [Suspect]
     Active Substance: MEDROXYPROGESTERONE ACETATE
     Indication: CONTRACEPTION
     Dosage: ?          OTHER STRENGTH:N/A;QUANTITY:0.3 INJECTION(S);OTHER FREQUENCY:N/A;?
     Route: 030
     Dates: start: 20160215, end: 20170215

REACTIONS (5)
  - Back pain [None]
  - Dizziness [None]
  - Spinal cord oedema [None]
  - Migraine [None]
  - Brain oedema [None]

NARRATIVE: CASE EVENT DATE: 20170415
